FAERS Safety Report 6921041-6 (Version None)
Quarter: 2010Q3

REPORT INFORMATION
  Report Type: 
  Country: None (occurrence: None)
  Receive Date: 20100812
  Receipt Date: 20100803
  Transmission Date: 20110219
  Serious: Yes (Disabling, Other)
  Sender: FDA-Public Use
  Company Number: US-PFIZER INC-2009300027

PATIENT
  Sex: Female
  Weight: 61.224 kg

DRUGS (18)
  1. XANAX [Suspect]
     Indication: ANXIETY
     Dosage: 1MG, UP TO 8X/DAY
     Route: 048
     Dates: start: 19740101
  2. XANAX [Suspect]
     Indication: NERVOUSNESS
     Dosage: 9 TABLETS DAILY
     Route: 048
  3. XANAX [Suspect]
     Indication: DEPRESSION
  4. ALPRAZOLAM [Suspect]
     Indication: ANXIETY
     Dosage: 1MG UP TO 8 TIMES A DAY
     Route: 048
     Dates: start: 20070101
  5. ALPRAZOLAM [Suspect]
     Indication: NERVOUSNESS
     Dosage: REDUCED TO 7 TABLETS
     Route: 048
  6. ALPRAZOLAM [Suspect]
     Indication: DEPRESSION
  7. LEVOTHYROXINE SODIUM [Suspect]
     Dosage: UNK
     Route: 048
  8. ZOLOFT [Concomitant]
  9. KLONOPIN [Concomitant]
  10. MS CONTIN [Concomitant]
     Indication: PAIN
     Dosage: UNK
     Route: 048
  11. SYNTHROID [Concomitant]
  12. PREMARIN [Concomitant]
  13. LEXAPRO [Concomitant]
     Indication: ANTIDEPRESSANT THERAPY
     Dosage: UNK
     Route: 048
  14. EFFEXOR [Concomitant]
     Indication: ANTIDEPRESSANT THERAPY
     Dosage: UNK
     Route: 048
  15. IBUPROFEN [Concomitant]
     Indication: PAIN
     Dosage: UNK
     Route: 048
  16. PERCOCET [Concomitant]
     Indication: PAIN
     Dosage: UNK
     Route: 048
  17. DURAGESIC-100 [Concomitant]
     Indication: PAIN
     Dosage: 50 UG, 1X/DAY
     Route: 062
  18. LASIX [Concomitant]
     Dosage: UNK
     Route: 048

REACTIONS (5)
  - DEPRESSION [None]
  - NEURODERMATITIS [None]
  - ROAD TRAFFIC ACCIDENT [None]
  - SOMNOLENCE [None]
  - TRANSIENT ISCHAEMIC ATTACK [None]
